FAERS Safety Report 20419981 (Version 7)
Quarter: 2022Q3

REPORT INFORMATION
  Report Type: Spontaneous
  Country: JP (occurrence: JP)
  Receive Date: 20220203
  Receipt Date: 20220802
  Transmission Date: 20221026
  Serious: Yes (Hospitalization, Other)
  Sender: FDA-Public Use
  Company Number: JP-GSKNCCC-Case-01410284_AE-54345

PATIENT

DRUGS (61)
  1. BENLYSTA [Suspect]
     Active Substance: BELIMUMAB
     Indication: Systemic lupus erythematosus
     Dosage: 200 MG, WE, SATURDAY
     Route: 058
     Dates: start: 20201204
  2. PREDNISOLONE [Concomitant]
     Active Substance: PREDNISOLONE
     Indication: Systemic lupus erythematosus
     Dosage: 15 MG
     Dates: start: 2007, end: 2007
  3. PREDNISOLONE [Concomitant]
     Active Substance: PREDNISOLONE
     Dosage: 25 MG
     Dates: start: 2007, end: 2007
  4. PREDNISOLONE [Concomitant]
     Active Substance: PREDNISOLONE
     Dosage: 20 MG
     Dates: start: 2007
  5. PREDNISOLONE [Concomitant]
     Active Substance: PREDNISOLONE
     Dosage: TAPERED
     Dates: start: 2008
  6. PREDNISOLONE [Concomitant]
     Active Substance: PREDNISOLONE
     Dosage: 10 MG
     Dates: start: 200802, end: 2008
  7. PREDNISOLONE [Concomitant]
     Active Substance: PREDNISOLONE
     Dosage: 20 MG
     Dates: start: 200805, end: 2008
  8. PREDNISOLONE [Concomitant]
     Active Substance: PREDNISOLONE
     Dosage: 13 MG
     Dates: start: 200807
  9. PREDNISOLONE [Concomitant]
     Active Substance: PREDNISOLONE
     Dosage: TAPERED
     Dates: start: 2010
  10. PREDNISOLONE [Concomitant]
     Active Substance: PREDNISOLONE
     Dosage: 4-5MG
     Dates: end: 2010
  11. PREDNISOLONE [Concomitant]
     Active Substance: PREDNISOLONE
     Dosage: 20 MG
     Dates: start: 2010
  12. PREDNISOLONE [Concomitant]
     Active Substance: PREDNISOLONE
     Dosage: TAPERED
     Dates: start: 2010
  13. PREDNISOLONE [Concomitant]
     Active Substance: PREDNISOLONE
     Dosage: 6 MG
     Dates: end: 2012
  14. PREDNISOLONE [Concomitant]
     Active Substance: PREDNISOLONE
     Dosage: 10 MG
     Dates: start: 201210, end: 2012
  15. PREDNISOLONE [Concomitant]
     Active Substance: PREDNISOLONE
     Dosage: 20 MG
     Dates: start: 201206
  16. PREDNISOLONE [Concomitant]
     Active Substance: PREDNISOLONE
     Dosage: 8/7 MG ALTERNATELY
     Dates: start: 201308
  17. PREDNISOLONE [Concomitant]
     Active Substance: PREDNISOLONE
     Dosage: 20-30 MG
     Dates: start: 201508, end: 2015
  18. PREDNISOLONE [Concomitant]
     Active Substance: PREDNISOLONE
     Dosage: 40 MG
     Dates: start: 201509, end: 20150913
  19. PREDNISOLONE [Concomitant]
     Active Substance: PREDNISOLONE
     Dosage: 30 MG
     Dates: start: 20150914
  20. PREDNISOLONE [Concomitant]
     Active Substance: PREDNISOLONE
     Dosage: 25 MG
  21. PREDNISOLONE [Concomitant]
     Active Substance: PREDNISOLONE
     Dosage: UNK MG
  22. PREDNISOLONE [Concomitant]
     Active Substance: PREDNISOLONE
     Dosage: 5 MG
     Dates: start: 201906, end: 2020
  23. PREDNISOLONE [Concomitant]
     Active Substance: PREDNISOLONE
     Dosage: 4 MG
     Dates: start: 202002, end: 202005
  24. PREDNISOLONE [Concomitant]
     Active Substance: PREDNISOLONE
     Dosage: 8 MG
     Dates: start: 202005, end: 20200520
  25. PREDNISOLONE [Concomitant]
     Active Substance: PREDNISOLONE
     Dosage: 11 MG
     Dates: start: 20200521, end: 2020
  26. PREDNISOLONE [Concomitant]
     Active Substance: PREDNISOLONE
     Dosage: 13 MG
     Dates: start: 2020
  27. PREDNISOLONE [Concomitant]
     Active Substance: PREDNISOLONE
     Dosage: 11 MG
     Dates: end: 20210526
  28. PREDNISOLONE [Concomitant]
     Active Substance: PREDNISOLONE
     Dosage: 45 MG
     Dates: start: 20210527, end: 20210609
  29. PREDNISOLONE [Concomitant]
     Active Substance: PREDNISOLONE
     Dosage: 40 MG
     Dates: start: 20210610, end: 20210616
  30. PREDNISOLONE [Concomitant]
     Active Substance: PREDNISOLONE
     Dosage: 35 MG
     Dates: start: 20210617, end: 20210623
  31. PREDNISOLONE [Concomitant]
     Active Substance: PREDNISOLONE
     Dosage: 30 MG
     Dates: start: 20210624, end: 20210630
  32. PREDNISOLONE [Concomitant]
     Active Substance: PREDNISOLONE
     Dosage: 25 MG
     Dates: start: 20210701, end: 20210707
  33. PREDNISOLONE [Concomitant]
     Active Substance: PREDNISOLONE
     Dosage: 10 MG, BID
     Dates: start: 20210708, end: 20210905
  34. PREDNISOLONE [Concomitant]
     Active Substance: PREDNISOLONE
     Dosage: 16 MG
     Dates: start: 20210906, end: 20211003
  35. PREDNISOLONE [Concomitant]
     Active Substance: PREDNISOLONE
     Dosage: 14 MG
     Dates: start: 20211004, end: 20211031
  36. PREDNISOLONE [Concomitant]
     Active Substance: PREDNISOLONE
     Dosage: 13 MG
     Dates: start: 20211101
  37. PREDNISOLONE [Concomitant]
     Active Substance: PREDNISOLONE
     Dosage: 12 MG (5 MG AFTER BREAKFAST, 7 MG AFTER LUNCH)
  38. PLAQUENIL TABLETS (HYDROXYCHLOROQUINE SULFATE) [Concomitant]
     Indication: Systemic lupus erythematosus
     Dosage: 200/400MG
  39. PLAQUENIL TABLETS (HYDROXYCHLOROQUINE SULFATE) [Concomitant]
     Dosage: 200 MG, QD
     Dates: start: 20210527
  40. PROCYLIN TABLETS [Concomitant]
     Dosage: 20 ?G, TID, AFTER EACH MEAL
     Dates: start: 20150914
  41. VONOPRAZAN FUMARATE [Concomitant]
     Active Substance: VONOPRAZAN FUMARATE
     Dosage: 20 MG, QD, AFTER BREAKFAST
  42. SELBEX CAPSULE [Concomitant]
     Dosage: 50 MG, BID, AFTER LUNCH AND DINNER
  43. MAGNESIUM OXIDE [Concomitant]
     Active Substance: MAGNESIUM OXIDE
     Dosage: 330 MG, QD, AFTER DINNER
  44. AMLODIN OD TABLETS [Concomitant]
     Dosage: 5 MG, QD, AFTER BREAKFAST
  45. MAINTATE (BISOPROLOL FUMARATE) [Concomitant]
     Dosage: 1.25 MG, QD, AFTER LUNCH
  46. ALFAROL CAPSULE [Concomitant]
     Dosage: 0.5 ?G, QD, AFTER BREAKFAST
  47. MUCOSOLVAN L TABLET [Concomitant]
     Dosage: 45 MG, QD,AFTER BREAKFAST
  48. SULFAMETHOXAZOLE\TRIMETHOPRIM [Concomitant]
     Active Substance: SULFAMETHOXAZOLE\TRIMETHOPRIM
     Dosage: 1 DF AFTER BREAKFAST ON TUESDAY, THURSDAY, SATURDAY
  49. HERBALS [Concomitant]
     Active Substance: HERBALS
     Dosage: 2.5 G, TID, BEFORE EACH MEAL
     Dates: start: 20220205
  50. AZATHIOPRINE [Concomitant]
     Active Substance: AZATHIOPRINE
     Dosage: 75 MG
     Dates: start: 201206
  51. AZATHIOPRINE [Concomitant]
     Active Substance: AZATHIOPRINE
     Dosage: 100 MG
  52. AZATHIOPRINE [Concomitant]
     Active Substance: AZATHIOPRINE
     Dosage: 50 MG
     Dates: start: 201206
  53. AZATHIOPRINE [Concomitant]
     Active Substance: AZATHIOPRINE
     Dosage: 75 MG
     Dates: start: 20150907
  54. AZATHIOPRINE [Concomitant]
     Active Substance: AZATHIOPRINE
     Dosage: 100 MG
     Dates: start: 20150916, end: 20210527
  55. CYCLOPHOSPHAMIDE IV [Concomitant]
     Dosage: 750 MG/M2
     Route: 042
     Dates: start: 20210601
  56. CYCLOPHOSPHAMIDE IV [Concomitant]
     Dosage: UNK MG/M2
     Route: 042
     Dates: start: 20210629
  57. CYCLOPHOSPHAMIDE IV [Concomitant]
     Dosage: 600 MG
     Route: 042
     Dates: start: 20210726
  58. CYCLOPHOSPHAMIDE IV [Concomitant]
     Dosage: 500 MG
     Route: 042
     Dates: start: 20210906
  59. CYCLOPHOSPHAMIDE IV [Concomitant]
     Dosage: 500 MG
     Route: 042
     Dates: start: 20211004
  60. NEXIUM [Concomitant]
     Active Substance: ESOMEPRAZOLE MAGNESIUM
     Dosage: UNK
  61. TERRA-CORTRIL (HYDROCORTISONE + OXYTETRACYCLINE HYDROCHLORIDE) [Concomitant]
     Indication: Erythema
     Dosage: UNK
     Dates: start: 201206

REACTIONS (7)
  - CSF protein increased [Not Recovered/Not Resolved]
  - Encephalitis [Unknown]
  - Neuropsychiatric lupus [Not Recovered/Not Resolved]
  - Anxiety disorder [Not Recovered/Not Resolved]
  - Somatic symptom disorder [Not Recovered/Not Resolved]
  - Back pain [Not Recovered/Not Resolved]
  - Epistaxis [Not Recovered/Not Resolved]

NARRATIVE: CASE EVENT DATE: 20201207
